FAERS Safety Report 8816429 (Version 1)
Quarter: 2012Q4

REPORT INFORMATION
  Report Type: Spontaneous
  Country: US (occurrence: None)
  Receive Date: 20120928
  Receipt Date: 20120928
  Transmission Date: 20130627
  Serious: Yes (Other)
  Sender: FDA-Public Use
  Company Number: None

PATIENT
  Age: 52 Year
  Sex: Female
  Weight: 70.76 kg

DRUGS (1)
  1. METFORMIN [Suspect]
     Indication: DIABETES
     Route: 048
     Dates: start: 20100408, end: 20120202

REACTIONS (1)
  - Muscle spasms [None]
